FAERS Safety Report 6449691-4 (Version None)
Quarter: 2009Q4

REPORT INFORMATION
  Report Type: 
  Country: None (occurrence: None)
  Receive Date: 20091120
  Receipt Date: 20090112
  Transmission Date: 20100525
  Serious: Yes (Other)
  Sender: FDA-Public Use
  Company Number: US-AMGEN-QUU326012

PATIENT
  Sex: Female
  Weight: 77 kg

DRUGS (17)
  1. ENBREL [Suspect]
     Indication: RHEUMATOID ARTHRITIS
     Route: 058
     Dates: start: 20061012, end: 20081201
  2. METHOTREXATE [Concomitant]
     Dates: start: 20010101
  3. PREDNISONE [Concomitant]
  4. FOLIC ACID [Concomitant]
  5. NABUMETONE [Concomitant]
  6. FOSAMAX [Concomitant]
  7. LEUCOVORIN CALCIUM [Concomitant]
  8. ZOCOR [Concomitant]
  9. ZESTORETIC [Concomitant]
  10. PLAVIX [Concomitant]
  11. CATAPRES [Concomitant]
  12. CALCIUM [Concomitant]
  13. MULTI-VITAMINS [Concomitant]
  14. NEURONTIN [Concomitant]
  15. PNEUMOVAX 23 [Concomitant]
     Dates: start: 20060101
  16. INFLUENZA VACCINE [Concomitant]
     Dates: start: 20070101
  17. ZANTAC [Concomitant]

REACTIONS (3)
  - ATELECTASIS [None]
  - LUNG INFILTRATION [None]
  - THROMBOCYTOPENIA [None]
